FAERS Safety Report 21762665 (Version 1)
Quarter: 2022Q4

REPORT INFORMATION
  Report Type: Spontaneous
  Country: US (occurrence: None)
  Receive Date: 20221221
  Receipt Date: 20221221
  Transmission Date: 20230112
  Serious: Yes (Other)
  Sender: FDA-Public Use
  Company Number: None

PATIENT
  Age: 87 Year
  Sex: Male
  Weight: 81.65 kg

DRUGS (15)
  1. CALQUENCE [Suspect]
     Active Substance: ACALABRUTINIB
     Indication: Lymphoma
     Dosage: FREQUENCY : AT BEDTIME;?
     Route: 048
  2. NYSTATIN [Concomitant]
     Active Substance: NYSTATIN
  3. ZETIA [Concomitant]
     Active Substance: EZETIMIBE
  4. DIGOXIN [Concomitant]
     Active Substance: DIGOXIN
  5. CRESTOR [Concomitant]
     Active Substance: ROSUVASTATIN CALCIUM
  6. Latonaprost Drops [Concomitant]
  7. lsosorbide [Concomitant]
  8. ASPIRIN [Concomitant]
     Active Substance: ASPIRIN
  9. B-12 [Concomitant]
  10. Dilatiazem [Concomitant]
  11. VITAMIN D3 [Concomitant]
     Active Substance: CHOLECALCIFEROL
  12. CLEARLAX [Concomitant]
     Active Substance: POLYETHYLENE GLYCOL 3350
  13. PreserVision Ared2 [Concomitant]
  14. ELIQUIS [Concomitant]
     Active Substance: APIXABAN
  15. TUMS [Concomitant]

REACTIONS (6)
  - Contusion [None]
  - Peripheral swelling [None]
  - Peripheral swelling [None]
  - Cellulitis [None]
  - Therapy change [None]
  - Peripheral swelling [None]

NARRATIVE: CASE EVENT DATE: 20221116
